FAERS Safety Report 5391428-4 (Version None)
Quarter: 2007Q3

REPORT INFORMATION
  Report Type: 
  Country: None (occurrence: None)
  Receive Date: 20070719
  Receipt Date: 20070709
  Transmission Date: 20080115
  Serious: Yes (Hospitalization)
  Sender: FDA-Public Use
  Company Number: AU-ROCHE-490203

PATIENT
  Age: 72 Year
  Sex: Male
  Weight: 74 kg

DRUGS (3)
  1. CAPECITABINE [Suspect]
     Dosage: GIVEN DAYS 1-14 EVERY 3 WEEKS
     Route: 048
     Dates: start: 20070305
  2. BEVACIZUMAB [Suspect]
     Dosage: GIVEN ON DAY ONE OF A THREE WEEK CYCLE.
     Route: 042
     Dates: start: 20070305
  3. MITOMYCIN-C BULK POWDER [Suspect]
     Dosage: GIVEN ON DAY ONE OF A SIX WEEK CYCLE.
     Route: 042
     Dates: start: 20070305

REACTIONS (3)
  - DIARRHOEA [None]
  - INTESTINAL OBSTRUCTION [None]
  - NAUSEA [None]
